FAERS Safety Report 5258834-X (Version None)
Quarter: 2007Q1

REPORT INFORMATION
  Report Type: 
  Country: None (occurrence: None)
  Receive Date: 20070308
  Receipt Date: 20070305
  Transmission Date: 20070707
  Serious: Yes (Hospitalization, Disabling, Other)
  Sender: FDA-Public Use
  Company Number: US-GLAXOSMITHKLINE-A0641924A

PATIENT
  Sex: Female

DRUGS (7)
  1. LAMICTAL [Suspect]
     Indication: BIPOLAR DISORDER
     Route: 048
  2. SEROQUEL [Concomitant]
  3. PHENOBARBITAL TAB [Concomitant]
  4. STADOL [Concomitant]
  5. LEVOTHYROXINE SODIUM [Concomitant]
  6. VERAPAMIL [Concomitant]
  7. PROPRANOLOL [Concomitant]

REACTIONS (2)
  - LUNG NEOPLASM MALIGNANT [None]
  - PRESCRIBED OVERDOSE [None]
